FAERS Safety Report 19690866 (Version 3)
Quarter: 2021Q3

REPORT INFORMATION
  Report Type: Spontaneous
  Country: US (occurrence: US)
  Receive Date: 20210812
  Receipt Date: 20210927
  Transmission Date: 20211014
  Serious: Yes (Other)
  Sender: FDA-Public Use
  Company Number: US-PFIZER INC-202100998798

PATIENT
  Age: 86 Year
  Sex: Female
  Weight: 67.57 kg

DRUGS (2)
  1. LATANOPROST. [Suspect]
     Active Substance: LATANOPROST
     Indication: GLAUCOMA
     Dosage: 125MG (CO IS 2.5MG. ONE DROP IN EACH EYE AT BEDTIME)
  2. LATANOPROST. [Suspect]
     Active Substance: LATANOPROST
     Dosage: 125 UG, 1X/DAY

REACTIONS (5)
  - Age-related macular degeneration [Unknown]
  - Condition aggravated [Unknown]
  - Vision blurred [Unknown]
  - Glaucoma [Unknown]
  - Overdose [Unknown]
